FAERS Safety Report 24797114 (Version 1)
Quarter: 2025Q1

REPORT INFORMATION
  Report Type: Report from Study
  Country: US (occurrence: US)
  Receive Date: 20250101
  Receipt Date: 20250101
  Transmission Date: 20250409
  Serious: No
  Sender: SYNDAX
  Company Number: US-SYNDAX PHARMACEUTICALS, INC.-2024US000624

PATIENT
  Age: 42 Year
  Sex: Male
  Weight: 74.83 kg

DRUGS (1)
  1. REVUFORJ [Suspect]
     Active Substance: REVUMENIB CITRATE
     Indication: Acute myeloid leukaemia
     Dosage: 160 MILLIGRAM, BID
     Route: 048
     Dates: start: 20241222

REACTIONS (1)
  - Pain [Not Recovered/Not Resolved]
